FAERS Safety Report 25622258 (Version 1)
Quarter: 2025Q3

REPORT INFORMATION
  Report Type: Spontaneous
  Country: CN (occurrence: CN)
  Receive Date: 20250730
  Receipt Date: 20250730
  Transmission Date: 20251020
  Serious: Yes (Hospitalization)
  Sender: BEIGENE
  Company Number: CN-BEIGENE-BGN-2025-012114

PATIENT
  Age: 71 Year

DRUGS (10)
  1. TISLELIZUMAB [Suspect]
     Active Substance: TISLELIZUMAB
     Indication: Lung neoplasm malignant
  2. TISLELIZUMAB [Suspect]
     Active Substance: TISLELIZUMAB
     Route: 041
  3. TISLELIZUMAB [Suspect]
     Active Substance: TISLELIZUMAB
     Route: 041
  4. TISLELIZUMAB [Suspect]
     Active Substance: TISLELIZUMAB
  5. CARBOPLATIN [Suspect]
     Active Substance: CARBOPLATIN
     Indication: Lung neoplasm malignant
     Route: 041
  6. CARBOPLATIN [Suspect]
     Active Substance: CARBOPLATIN
  7. PACLITAXEL [Suspect]
     Active Substance: PACLITAXEL
     Indication: Lung neoplasm malignant
     Route: 041
  8. PACLITAXEL [Suspect]
     Active Substance: PACLITAXEL
  9. ENDOSTATIN [Concomitant]
     Active Substance: ENDOSTATIN
     Indication: Lung neoplasm malignant
     Route: 042
  10. ENDOSTATIN [Concomitant]
     Active Substance: ENDOSTATIN

REACTIONS (3)
  - Nausea [Recovering/Resolving]
  - Vomiting [Recovering/Resolving]
  - Myelosuppression [Recovering/Resolving]
